FAERS Safety Report 21517535 (Version 1)
Quarter: 2022Q4

REPORT INFORMATION
  Report Type: Spontaneous
  Country: US (occurrence: US)
  Receive Date: 20221028
  Receipt Date: 20221028
  Transmission Date: 20230112
  Serious: Yes (Other)
  Sender: FDA-Public Use
  Company Number: US-SA-SAC20221021000910

PATIENT
  Sex: Female

DRUGS (1)
  1. AUBAGIO [Suspect]
     Active Substance: TERIFLUNOMIDE
     Indication: Multiple sclerosis
     Dosage: UNK

REACTIONS (6)
  - Suicide attempt [Unknown]
  - Ankle fracture [Unknown]
  - Nervous system disorder [Unknown]
  - Fibula fracture [Unknown]
  - Ligament injury [Unknown]
  - Diarrhoea [Unknown]
